FAERS Safety Report 6222086-4 (Version None)
Quarter: 2009Q2

REPORT INFORMATION
  Report Type: 
  Country: None (occurrence: None)
  Receive Date: 20090608
  Receipt Date: 20090608
  Transmission Date: 20091009
  Serious: Yes (Other)
  Sender: FDA-Public Use
  Company Number: None

PATIENT
  Age: 53 Year
  Sex: Female
  Weight: 68.0396 kg

DRUGS (8)
  1. PREMARIN [Suspect]
     Indication: VAGINAL DISORDER
     Dosage: NONE 3 TIMES PER WEEK VAG 24/7
     Route: 067
     Dates: start: 20090527, end: 20090604
  2. FLECTOR [Suspect]
     Indication: BACK PAIN
     Dosage: ONE PATCH/4 GRAMS GEL 2 X DAY/4 X DA TOP 24/7
     Route: 061
     Dates: start: 20090529, end: 20090604
  3. FLECTOR [Suspect]
     Indication: INTERVERTEBRAL DISC DEGENERATION
     Dosage: ONE PATCH/4 GRAMS GEL 2 X DAY/4 X DA TOP 24/7
     Route: 061
     Dates: start: 20090529, end: 20090604
  4. FLECTOR [Suspect]
     Indication: SCIATICA
     Dosage: ONE PATCH/4 GRAMS GEL 2 X DAY/4 X DA TOP 24/7
     Route: 061
     Dates: start: 20090529, end: 20090604
  5. EVISTA [Concomitant]
  6. THYROID TAB [Concomitant]
  7. MINOCIN [Concomitant]
  8. KLONOPIN [Concomitant]

REACTIONS (6)
  - BODY TEMPERATURE DECREASED [None]
  - INCORRECT DOSE ADMINISTERED [None]
  - MALAISE [None]
  - SCRATCH [None]
  - VIRAL INFECTION [None]
  - VOMITING [None]
